FAERS Safety Report 26152854 (Version 1)
Quarter: 2025Q4

REPORT INFORMATION
  Report Type: Spontaneous
  Country: EU (occurrence: EU)
  Receive Date: 20251214
  Receipt Date: 20251214
  Transmission Date: 20260118
  Serious: Yes (Death)
  Sender: BIOGEN
  Company Number: EU-BIOGEN-2025BI01312090

PATIENT
  Age: 65 Year
  Sex: Female
  Weight: 55 kg

DRUGS (1)
  1. OMAVELOXOLONE [Suspect]
     Active Substance: OMAVELOXOLONE
     Indication: Friedreich^s ataxia
     Dosage: 150 MG/J
     Dates: start: 20241013, end: 20250507

REACTIONS (3)
  - Friedreich^s ataxia [Fatal]
  - Pneumonia [Fatal]
  - Respiratory depression [Fatal]

NARRATIVE: CASE EVENT DATE: 20250403
